FAERS Safety Report 6560365-1 (Version None)
Quarter: 2010Q1

REPORT INFORMATION
  Report Type: 
  Country: None (occurrence: None)
  Receive Date: 20100129
  Receipt Date: 20090924
  Transmission Date: 20100710
  Serious: No
  Sender: FDA-Public Use
  Company Number: US-ABBOTT-09P-163-0599160-00

PATIENT
  Sex: Female
  Weight: 99.88 kg

DRUGS (3)
  1. HUMIRA [Suspect]
     Indication: PSORIASIS
     Dosage: 80MG LOADING DOSE
     Dates: start: 20090903, end: 20090903
  2. HUMIRA [Suspect]
     Dosage: 80MG; SECOND DOSE
     Dates: start: 20090910, end: 20090910
  3. HUMIRA [Suspect]

REACTIONS (1)
  - INJECTION SITE PAIN [None]
